FAERS Safety Report 17212911 (Version 3)
Quarter: 2020Q1

REPORT INFORMATION
  Report Type: Spontaneous
  Country: GB (occurrence: GB)
  Receive Date: 20191230
  Receipt Date: 20200130
  Transmission Date: 20200409
  Serious: Yes (Life-Threatening, Hospitalization, Other)
  Sender: FDA-Public Use
  Company Number: GB-DRREDDYS-USA/UKI/19/0117849

PATIENT
  Sex: Male

DRUGS (2)
  1. LEVOTHYROXINE SODIUM. [Suspect]
     Active Substance: LEVOTHYROXINE SODIUM
     Indication: PRODUCT USED FOR UNKNOWN INDICATION
     Dosage: EXACT AMOUNT OF DRUGS INGESTED WERE UNCLEAR, BUT HE MIGHT HAD INGESTED TRIVIAL AMOUNTS OF LEVOTHYROX
     Route: 048
  2. PREGABALIN. [Suspect]
     Active Substance: PREGABALIN
     Indication: PRODUCT USED FOR UNKNOWN INDICATION
     Dosage: EXACT AMOUNT OF DRUGS INGESTED WERE UNCLEAR,,BUT HE MIGHT HAD INGESTED TRIVIAL AMOUNTS OF PREGABALIN
     Route: 048

REACTIONS (8)
  - Toxicity to various agents [Recovered/Resolved]
  - Agitation [Unknown]
  - Suicide attempt [Recovered/Resolved]
  - Respiratory failure [Recovered/Resolved]
  - Acute respiratory distress syndrome [Recovered/Resolved]
  - Overdose [Recovered/Resolved]
  - Pneumonia aspiration [Recovered/Resolved]
  - Loss of consciousness [Recovered/Resolved]
